FAERS Safety Report 7091285-4 (Version None)
Quarter: 2010Q4

REPORT INFORMATION
  Report Type: 
  Country: None (occurrence: None)
  Receive Date: 20101109
  Receipt Date: 20101104
  Transmission Date: 20110411
  Serious: Yes (Hospitalization)
  Sender: FDA-Public Use
  Company Number: BR-PFIZER INC-2010065324

PATIENT
  Age: 79 Year
  Sex: Male
  Weight: 78.1 kg

DRUGS (9)
  1. BLINDED *NO SUBJECT DRUG [Suspect]
     Indication: PROSTATE CANCER
     Dosage: 37.5 MG, 1X/DAY
     Route: 048
     Dates: start: 20100420, end: 20100520
  2. BLINDED *PLACEBO [Suspect]
     Indication: PROSTATE CANCER
     Dosage: 37.5 MG, 1X/DAY
     Route: 048
     Dates: start: 20100420, end: 20100520
  3. SUNITINIB MALATE [Suspect]
     Indication: PROSTATE CANCER
     Dosage: 37.5 MG, 1X/DAY
     Route: 048
     Dates: start: 20100420, end: 20100520
  4. PREDNISONE [Suspect]
     Indication: PROSTATE CANCER
     Dosage: 5 MG, 2X/DAY
     Route: 048
     Dates: start: 20100420, end: 20100520
  5. AMILORIDE [Concomitant]
     Indication: HYPERTENSION
     Dosage: 5 MG, 1X/DAY
     Route: 048
     Dates: start: 20100401
  6. CALCIUM [Concomitant]
     Indication: METASTASES TO BONE
     Dosage: 500 MG, 1X/DAY
     Route: 048
     Dates: start: 20100430
  7. DIPYRONE [Concomitant]
     Indication: PELVIC PAIN
     Dosage: 40 DROPS, AS NEEDED
     Route: 047
     Dates: start: 20100101
  8. HYDROCHLOROTHIAZIDE [Concomitant]
     Indication: HYPERTENSION
     Dosage: 50 MG, 1X/DAY
     Route: 048
     Dates: start: 20100401
  9. ZOLEDRONIC ACID [Concomitant]
     Indication: METASTASES TO BONE
     Dosage: 3 MG, MONTHLY
     Route: 042
     Dates: start: 20090831

REACTIONS (2)
  - FEBRILE NEUTROPENIA [None]
  - GASTROENTERITIS [None]
